FAERS Safety Report 14972598 (Version 1)
Quarter: 2018Q2

REPORT INFORMATION
  Report Type: Spontaneous
  Country: CZ (occurrence: CZ)
  Receive Date: 20180605
  Receipt Date: 20180605
  Transmission Date: 20180711
  Serious: Yes (Other)
  Sender: FDA-Public Use
  Company Number: CZ-TEVA-2018-CZ-902031

PATIENT
  Age: 24 Year
  Sex: Female
  Weight: 78 kg

DRUGS (1)
  1. TRIPRIM 200 MG (TRIMETHOPRIM) [Suspect]
     Active Substance: TRIMETHOPRIM
     Indication: URINARY TRACT INFECTION
     Dosage: THE DOSAGE: 1 TABLET EVERY 12 HOURS (AT 9AM AND 9PM).
     Route: 048
     Dates: start: 20180324, end: 20180326

REACTIONS (2)
  - Rash pruritic [Unknown]
  - Disorientation [Unknown]

NARRATIVE: CASE EVENT DATE: 20180326
